FAERS Safety Report 8619001-2 (Version None)
Quarter: 2012Q3

REPORT INFORMATION
  Report Type: 
  Country: None (occurrence: None)
  Receive Date: 20120824
  Receipt Date: 20120821
  Transmission Date: 20120928
  Serious: No
  Sender: FDA-Public Use
  Company Number: PHEH2011US04180

PATIENT
  Sex: Male

DRUGS (16)
  1. MULTIPLE VITAMINS [Concomitant]
     Dosage: 1 DF, QD
  2. CINNAMON [Concomitant]
  3. ALPHA LIPOIC ACID [Concomitant]
  4. CHLORELLA VULGARIS [Concomitant]
  5. ZINC SULFATE [Concomitant]
  6. TASIGNA [Suspect]
     Dosage: UNK
     Dates: start: 20110106
  7. FERROUS SULFATE TAB [Concomitant]
     Indication: IRON DEFICIENCY
     Dates: start: 20110418
  8. LOVAZA [Concomitant]
  9. SELENIUM [Concomitant]
  10. RESTASIS [Concomitant]
     Indication: LACRIMATION INCREASED
     Dosage: 1 DRP, Q12H
     Route: 047
     Dates: start: 20110701
  11. TASIGNA [Suspect]
     Indication: CHRONIC MYELOID LEUKAEMIA
     Dosage: 300 MG, BID
     Route: 048
     Dates: start: 20101230
  12. SPIRULINA [Concomitant]
  13. ALLOPURINOL [Concomitant]
     Indication: BLOOD URIC ACID
     Dosage: 300 MG, QD
     Dates: start: 20110318
  14. METFORMIN HCL [Concomitant]
     Indication: DIABETES MELLITUS
     Dosage: 500 MG, BID
     Dates: start: 20110401
  15. CHROMIUM CHLORIDE [Concomitant]
  16. METFORMIN HCL [Concomitant]

REACTIONS (8)
  - DRY EYE [None]
  - PHOTOSENSITIVITY REACTION [None]
  - MEMORY IMPAIRMENT [None]
  - CONSTIPATION [None]
  - EYE PAIN [None]
  - BLOOD GLUCOSE INCREASED [None]
  - RASH [None]
  - ABNORMAL SENSATION IN EYE [None]
